FAERS Safety Report 14390878 (Version 1)
Quarter: 2018Q1

REPORT INFORMATION
  Report Type: Spontaneous
  Country: US (occurrence: US)
  Receive Date: 20180116
  Receipt Date: 20180116
  Transmission Date: 20180509
  Serious: No
  Sender: FDA-Public Use
  Company Number: US-LUPIN PHARMACEUTICALS INC.-2017-02404

PATIENT
  Sex: Female

DRUGS (2)
  1. CEFDINIR CAPSULES [Suspect]
     Active Substance: CEFDINIR
     Indication: ESCHERICHIA URINARY TRACT INFECTION
     Dosage: UNK
     Route: 065
  2. VITAMINE C [Concomitant]
     Active Substance: ASCORBIC ACID
     Indication: CYSTITIS
     Dosage: UNK
     Route: 065

REACTIONS (1)
  - Diarrhoea [Unknown]
